FAERS Safety Report 18976007 (Version 3)
Quarter: 2025Q3

REPORT INFORMATION
  Report Type: Spontaneous
  Country: EU (occurrence: EU)
  Receive Date: 20210305
  Receipt Date: 20250703
  Transmission Date: 20251021
  Serious: Yes (Other)
  Sender: AUROBINDO
  Company Number: EU-EUSA PHARMA (UK) LIMITED-2020DE000135

PATIENT
  Age: 4 Year
  Sex: Female

DRUGS (9)
  1. IRINOTECAN [Suspect]
     Active Substance: IRINOTECAN
     Indication: Neuroblastoma recurrent
     Route: 065
     Dates: start: 201712
  2. TEMODAL [Suspect]
     Active Substance: TEMOZOLOMIDE
     Indication: Neuroblastoma recurrent
     Route: 048
     Dates: start: 201712
  3. TEMODAL [Suspect]
     Active Substance: TEMOZOLOMIDE
     Indication: Metastatic neoplasm
  4. DINUTUXIMAB BETA [Suspect]
     Active Substance: DINUTUXIMAB BETA
     Indication: Neuroblastoma recurrent
     Route: 065
     Dates: start: 201712, end: 201809
  5. DINUTUXIMAB BETA [Suspect]
     Active Substance: DINUTUXIMAB BETA
     Route: 065
     Dates: start: 201810
  6. NIVOLUMAB [Suspect]
     Active Substance: NIVOLUMAB
     Indication: Neuroblastoma recurrent
     Route: 065
     Dates: start: 201810
  7. DINUTUXIMAB [Concomitant]
     Active Substance: DINUTUXIMAB
     Indication: Metastatic neoplasm
     Route: 065
     Dates: start: 201810, end: 201908
  8. IRINOTECAN HYDROCHLORIDE [Concomitant]
     Active Substance: IRINOTECAN HYDROCHLORIDE
     Indication: Metastatic neoplasm
     Route: 065
  9. TEMOZOLOMIDE [Concomitant]
     Active Substance: TEMOZOLOMIDE
     Indication: Metastatic neoplasm
     Route: 065

REACTIONS (5)
  - Granulocytopenia [Recovered/Resolved]
  - Urinary tract infection [Recovered/Resolved]
  - Treatment failure [Unknown]
  - Drug tolerance decreased [Unknown]
  - Product used for unknown indication [Unknown]

NARRATIVE: CASE EVENT DATE: 20171201
